FAERS Safety Report 9922749 (Version 5)
Quarter: 2015Q1

REPORT INFORMATION
  Report Type: Spontaneous
  Country: US (occurrence: US)
  Receive Date: 20140225
  Receipt Date: 20150311
  Transmission Date: 20150721
  Serious: Yes (Hospitalization, Disabling, Other)
  Sender: FDA-Public Use
  Company Number: US-009507513-1402USA010126

PATIENT
  Sex: Female
  Weight: 51.7 kg

DRUGS (9)
  1. ASCORBIC ACID. [Concomitant]
     Active Substance: ASCORBIC ACID
     Dosage: 1 DF, QD
     Dates: start: 1965
  2. ZETIA [Concomitant]
     Active Substance: EZETIMIBE
     Indication: BLOOD CHOLESTEROL INCREASED
     Dosage: UNK
     Route: 048
     Dates: start: 2006, end: 2009
  3. ZYRTEC [Concomitant]
     Active Substance: CETIRIZINE HYDROCHLORIDE
     Indication: HYPERSENSITIVITY
     Dosage: UNK
     Dates: start: 200606, end: 200611
  4. ALLEGRA-D [Concomitant]
     Active Substance: FEXOFENADINE\PSEUDOEPHEDRINE
     Indication: HYPERSENSITIVITY
     Dosage: UNK
     Dates: start: 200612, end: 200808
  5. FOSAMAX [Suspect]
     Active Substance: ALENDRONATE SODIUM
     Indication: OSTEOPOROSIS
     Dosage: 70 MG, UNK
     Route: 048
     Dates: start: 200601, end: 200803
  6. VITAMINS (UNSPECIFIED) [Concomitant]
     Active Substance: VITAMINS
     Dosage: 1 DF, QD
     Dates: start: 1965
  7. FOSAMAX [Suspect]
     Active Substance: ALENDRONATE SODIUM
     Dosage: 70 MG, QW
     Route: 048
     Dates: start: 20110408
  8. ALENDRONATE SODIUM. [Suspect]
     Active Substance: ALENDRONATE SODIUM
     Indication: OSTEOPOROSIS
     Dosage: 70 MG, UNK
     Dates: start: 200803, end: 201104
  9. VITAMIN E [Concomitant]
     Active Substance: .ALPHA.-TOCOPHEROL
     Dosage: 1 DF, QD
     Dates: start: 1965

REACTIONS (27)
  - Basal cell carcinoma [Unknown]
  - Inflammatory pain [Unknown]
  - Osteoarthritis [Unknown]
  - Cataract [Unknown]
  - Osteopenia [Unknown]
  - Arthralgia [Unknown]
  - Femur fracture [Not Recovered/Not Resolved]
  - Drug intolerance [Unknown]
  - Wrist fracture [Unknown]
  - Asthma [Unknown]
  - Anxiety [Unknown]
  - Migraine [Unknown]
  - Tension headache [Unknown]
  - Lactose intolerance [Unknown]
  - Drug ineffective [Unknown]
  - Cardiac murmur [Unknown]
  - Nausea [Unknown]
  - Depression [Unknown]
  - Seborrhoeic keratosis [Unknown]
  - Gastrooesophageal reflux disease [Unknown]
  - Limb asymmetry [Unknown]
  - Back pain [Recovered/Resolved]
  - Abdominal pain upper [Unknown]
  - Internal fixation of fracture [Not Recovered/Not Resolved]
  - Actinic keratosis [Unknown]
  - Fatigue [Unknown]
  - Bursitis [Unknown]

NARRATIVE: CASE EVENT DATE: 2006
